FAERS Safety Report 6038774-9 (Version None)
Quarter: 2009Q1

REPORT INFORMATION
  Report Type: 
  Country: None (occurrence: None)
  Receive Date: 20090115
  Receipt Date: 20080324
  Transmission Date: 20090719
  Serious: No
  Sender: FDA-Public Use
  Company Number: US-ABBOTT-08P-163-0443689-00

PATIENT
  Age: 45 Year
  Sex: Female

DRUGS (2)
  1. ADVICOR [Suspect]
     Indication: BLOOD TRIGLYCERIDES INCREASED
     Route: 048
     Dates: start: 20080224, end: 20080321
  2. ADVICOR [Suspect]
     Indication: HIGH DENSITY LIPOPROTEIN DECREASED

REACTIONS (3)
  - BLOOD PRESSURE INCREASED [None]
  - SKIN BURNING SENSATION [None]
  - URTICARIA [None]
